FAERS Safety Report 8695134 (Version 2)
Quarter: 2013Q4

REPORT INFORMATION
  Report Type: Spontaneous
  Country: US (occurrence: US)
  Receive Date: 20120731
  Receipt Date: 20131108
  Transmission Date: 20140711
  Serious: Yes (Disabling)
  Sender: FDA-Public Use
  Company Number: US-009507513-1207USA009690

PATIENT
  Age: 63 Year
  Sex: Female

DRUGS (8)
  1. ZOCOR [Suspect]
     Dosage: 20 MG, QD
     Route: 048
  2. LETROZOLE [Suspect]
     Dosage: 2.5 MG, UNK
     Route: 048
  3. CALCICHEW D3 [Concomitant]
  4. LANSOPRAZOLE [Concomitant]
  5. ACETAMINOPHEN [Concomitant]
  6. SERTRALINE HYDROCHLORIDE [Concomitant]
  7. ASPIRIN [Concomitant]
  8. BISOPROLOL [Concomitant]

REACTIONS (4)
  - Mobility decreased [Unknown]
  - Myalgia [Unknown]
  - Arthralgia [Unknown]
  - Blood creatine phosphokinase increased [Unknown]
